FAERS Safety Report 6360202-4 (Version None)
Quarter: 2009Q3

REPORT INFORMATION
  Report Type: 
  Country: None (occurrence: None)
  Receive Date: 20090917
  Receipt Date: 20090907
  Transmission Date: 20100115
  Serious: Yes (Other)
  Sender: FDA-Public Use
  Company Number: US-JNJFOC-20090507142

PATIENT
  Age: 43 Year
  Sex: Female
  Weight: 77.11 kg

DRUGS (4)
  1. TYLENOL (CAPLET) [Suspect]
     Route: 048
  2. TYLENOL (CAPLET) [Suspect]
     Indication: SINUS HEADACHE
     Dosage: 650 MG NO MORE THAN 2-3 TIMES A DAY OR AS NEEDED
     Route: 048
  3. EXTRA STRENGTH TYLENOL [Suspect]
     Route: 048
  4. EXTRA STRENGTH TYLENOL [Suspect]
     Indication: SINUS HEADACHE
     Dosage: 1000 MG NO MORE THAN TWICE A DAY OR AS NEEDED
     Route: 048

REACTIONS (3)
  - BILIARY CIRRHOSIS PRIMARY [None]
  - HEPATIC FAILURE [None]
  - OESOPHAGEAL VARICES HAEMORRHAGE [None]
